FAERS Safety Report 17377916 (Version 2)
Quarter: 2020Q2

REPORT INFORMATION
  Report Type: Spontaneous
  Country: US (occurrence: US)
  Receive Date: 20200206
  Receipt Date: 20200403
  Transmission Date: 20200713
  Serious: Yes (Hospitalization)
  Sender: FDA-Public Use
  Company Number: US-VERTEX PHARMACEUTICALS-2020-002018

PATIENT
  Age: 17 Year
  Sex: Female

DRUGS (6)
  1. METRONIDAZOLE. [Concomitant]
     Active Substance: METRONIDAZOLE
  2. PREDNISONE. [Concomitant]
     Active Substance: PREDNISONE
  3. LINEZOLIDE [Concomitant]
     Active Substance: LINEZOLID
  4. TRIKAFTA [Suspect]
     Active Substance: ELEXACAFTOR\IVACAFTOR\TEZACAFTOR
     Indication: CYSTIC FIBROSIS
     Dosage: ELEXACAFTOR 100MG/ TEZACAFTOR 50MG/ IVACAFTOR 75MG AM; IVA AFTOR 150MG PM
     Route: 048
     Dates: start: 20191029
  5. VANCOMYCIN [Concomitant]
     Active Substance: VANCOMYCIN
  6. CYPROHEPTADINE. [Concomitant]
     Active Substance: CYPROHEPTADINE

REACTIONS (1)
  - Pyrexia [Not Recovered/Not Resolved]

NARRATIVE: CASE EVENT DATE: 20200126
